FAERS Safety Report 11080235 (Version 1)
Quarter: 2015Q2

REPORT INFORMATION
  Report Type: Spontaneous
  Country: US (occurrence: US)
  Receive Date: 20150430
  Receipt Date: 20150430
  Transmission Date: 20150821
  Serious: Yes (Other)
  Sender: FDA-Public Use
  Company Number: US-ELI_LILLY_AND_COMPANY-US201504007850

PATIENT
  Age: 19 Year
  Sex: Male

DRUGS (1)
  1. STRATTERA [Suspect]
     Active Substance: ATOMOXETINE HYDROCHLORIDE
     Indication: PRODUCT USED FOR UNKNOWN INDICATION
     Route: 065

REACTIONS (5)
  - Sinus bradycardia [Unknown]
  - Left ventricular hypertrophy [Unknown]
  - Electrocardiogram ST segment elevation [Unknown]
  - Myocardial ischaemia [Unknown]
  - Electrocardiogram T wave abnormal [Unknown]
